FAERS Safety Report 5831622-9 (Version None)
Quarter: 2008Q3

REPORT INFORMATION
  Report Type: 
  Country: None (occurrence: None)
  Receive Date: 20080730
  Receipt Date: 20080716
  Transmission Date: 20090109
  Serious: Yes (Hospitalization)
  Sender: FDA-Public Use
  Company Number: 2008AL008417

PATIENT
  Age: 76 Year
  Sex: Male

DRUGS (2)
  1. DIGOXIN [Suspect]
     Indication: CARDIAC DISORDER
     Dosage: 0.25MG, DAILY, PO
     Route: 048
     Dates: start: 20080415, end: 20080509
  2. DIGOXIN [Suspect]
     Indication: CARDIAC DISORDER
     Dosage: 0.25MG, DAILY, PO
     Route: 048
     Dates: start: 20080104, end: 20080404

REACTIONS (3)
  - ANOREXIA [None]
  - DIZZINESS [None]
  - VISUAL IMPAIRMENT [None]
